FAERS Safety Report 6174505-X (Version None)
Quarter: 2009Q2

REPORT INFORMATION
  Report Type: 
  Country: None (occurrence: None)
  Receive Date: 20090430
  Receipt Date: 20080702
  Transmission Date: 20091009
  Serious: No
  Sender: FDA-Public Use
  Company Number: US-ASTRAZENECA-2008UW13261

PATIENT
  Sex: Male
  Weight: 52.6 kg

DRUGS (6)
  1. NEXIUM [Suspect]
     Indication: HIATUS HERNIA
     Route: 048
     Dates: start: 20070101
  2. EXELON [Concomitant]
  3. DIGOXIN [Concomitant]
  4. TRICOR [Concomitant]
  5. ATENOLOL [Concomitant]
  6. MULTI-VITAMIN [Concomitant]

REACTIONS (1)
  - PRODUCTIVE COUGH [None]
